FAERS Safety Report 5446188-5 (Version None)
Quarter: 2007Q3

REPORT INFORMATION
  Report Type: 
  Country: None (occurrence: None)
  Receive Date: 20070907
  Receipt Date: 20070829
  Transmission Date: 20080115
  Serious: Yes (Death)
  Sender: FDA-Public Use
  Company Number: US-TYCO HEALTHCARE/MALLINCKRODT-T200701005

PATIENT

DRUGS (3)
  1. OXYCODONE HCL [Suspect]
  2. METHADOSE [Suspect]
  3. DARVON [Suspect]

REACTIONS (1)
  - INTENTIONAL DRUG MISUSE [None]
